FAERS Safety Report 17445858 (Version 1)
Quarter: 2020Q1

REPORT INFORMATION
  Report Type: Spontaneous
  Country: CN (occurrence: CN)
  Receive Date: 20200221
  Receipt Date: 20200221
  Transmission Date: 20200409
  Serious: Yes (Other)
  Sender: FDA-Public Use
  Company Number: CN-BAXTER-2020BAX003633

PATIENT
  Age: 56 Year
  Sex: Female
  Weight: 75 kg

DRUGS (12)
  1. ENDOXAN [Suspect]
     Active Substance: CYCLOPHOSPHAMIDE
     Indication: BREAST CANCER FEMALE
     Dosage: ENDOXAN + NS, FIRST 2 CHEMOTHERAPIES
     Route: 042
  2. ENDOXAN [Suspect]
     Active Substance: CYCLOPHOSPHAMIDE
     Dosage: ENDOXAN + NS, DOSE RE-INTRODUCED
     Route: 042
  3. 0.9% SODIUM CHLORIDE INJECTION [Suspect]
     Active Substance: SODIUM CHLORIDE
     Dosage: ENDOXAN + NS, DOSE RE-INTRODUCED
     Route: 042
  4. ENDOXAN [Suspect]
     Active Substance: CYCLOPHOSPHAMIDE
     Dosage: ENDOXAN + NS, THIRD CHEMOTHERAPY
     Route: 042
     Dates: start: 20191126, end: 20191126
  5. 0.9% SODIUM CHLORIDE INJECTION [Suspect]
     Active Substance: SODIUM CHLORIDE
     Dosage: AI SU + NS, FIRST 2 CHEMOTHERAPIES
     Route: 041
  6. 0.9% SODIUM CHLORIDE INJECTION [Suspect]
     Active Substance: SODIUM CHLORIDE
     Dosage: ENDOXAN + NS, THIRD CHEMOTHERAPY
     Route: 042
     Dates: start: 20191126, end: 20191126
  7. 0.9% SODIUM CHLORIDE INJECTION [Suspect]
     Active Substance: SODIUM CHLORIDE
     Indication: MEDICATION DILUTION
     Dosage: ENDOXAN + NS, FIRST 2 CHEMOTHERAPIES
     Route: 042
  8. 0.9% SODIUM CHLORIDE INJECTION [Suspect]
     Active Substance: SODIUM CHLORIDE
     Dosage: AI SU + NS, DOSE RE-INTRODUCED
     Route: 041
  9. AI SU [Suspect]
     Active Substance: DOCETAXEL
     Indication: BREAST CANCER FEMALE
     Dosage: AI SU + NS, FIRST 2 CHEMOTHERAPIES
     Route: 041
  10. AI SU [Suspect]
     Active Substance: DOCETAXEL
     Dosage: AI SU + NS, THIRD CHEMOTHERAPY
     Route: 041
     Dates: start: 20191126, end: 20191126
  11. 0.9% SODIUM CHLORIDE INJECTION [Suspect]
     Active Substance: SODIUM CHLORIDE
     Dosage: AI SU + NS, THIRD CHEMOTHERAPY
     Route: 041
     Dates: start: 20191126, end: 20191126
  12. AI SU [Suspect]
     Active Substance: DOCETAXEL
     Dosage: AI SU + NS, DOSE RE-INTRODUCED
     Route: 041

REACTIONS (2)
  - White blood cell count decreased [Recovered/Resolved]
  - Agranulocytosis [Recovered/Resolved]

NARRATIVE: CASE EVENT DATE: 20191202
